FAERS Safety Report 17123793 (Version 1)
Quarter: 2019Q4

REPORT INFORMATION
  Report Type: Spontaneous
  Country: US (occurrence: US)
  Receive Date: 20191206
  Receipt Date: 20191206
  Transmission Date: 20200122
  Serious: No
  Sender: FDA-Public Use
  Company Number: US-ROCHE-2356709

PATIENT
  Sex: Female
  Weight: 53.07 kg

DRUGS (5)
  1. PRIMIDONE. [Concomitant]
     Active Substance: PRIMIDONE
  2. OCREVUS [Suspect]
     Active Substance: OCRELIZUMAB
     Indication: RELAPSING-REMITTING MULTIPLE SCLEROSIS
     Route: 042
  3. BACLOFEN. [Concomitant]
     Active Substance: BACLOFEN
  4. BETASERON [Concomitant]
     Active Substance: INTERFERON BETA-1B
  5. NUVIGIL [Concomitant]
     Active Substance: ARMODAFINIL

REACTIONS (2)
  - Urinary tract infection [Unknown]
  - Dizziness [Unknown]
